FAERS Safety Report 7501462-3 (Version None)
Quarter: 2011Q2

REPORT INFORMATION
  Report Type: 
  Country: None (occurrence: None)
  Receive Date: 20110524
  Receipt Date: 20080205
  Transmission Date: 20111010
  Serious: Yes (Hospitalization, Other)
  Sender: FDA-Public Use
  Company Number: US-BAYER-200813231NA

PATIENT
  Age: 52 Year
  Sex: Male
  Weight: 92.971 kg

DRUGS (25)
  1. INSULIN [Concomitant]
     Dosage: 16 UNITS MORNINGS, 56 UNITS EVENINGS
     Route: 058
  2. OMNICEF [Concomitant]
     Dosage: 300 MG, BID
     Route: 048
     Dates: start: 20040101
  3. PROPOFOL [Concomitant]
     Dosage: 150 MG, UNK
     Route: 042
     Dates: start: 20050613, end: 20050613
  4. PAVULON [Concomitant]
     Dosage: 7 MG, UNK
     Route: 042
     Dates: start: 20050613, end: 20050613
  5. HEPARIN [Concomitant]
     Dosage: UNK
     Route: 042
     Dates: start: 20050613, end: 20050613
  6. VANCOMYCIN [Concomitant]
     Dosage: 7MCG/KG/MIN
     Route: 042
     Dates: start: 20050613
  7. NITROGLYCERIN [Concomitant]
     Dosage: UNK
     Route: 042
     Dates: start: 20050613
  8. TRASYLOL [Suspect]
     Indication: CORONARY ARTERY BYPASS
     Dosage: INITIAL TEST DOSE GIVEN, NO LOADING DOSE DOCUMENTED, 50ML/HOUR INFUSION
     Route: 042
     Dates: start: 20050613, end: 20050613
  9. PROTAMINE SULFATE [Concomitant]
     Dosage: 470 MG, UNK
     Route: 042
     Dates: start: 20050613, end: 20050613
  10. HYDROCHLOROTHIAZIDE [Concomitant]
     Dosage: 25 MG, QD
     Route: 048
  11. TYLENOL (CAPLET) [Concomitant]
     Dosage: UNK UNK, BID
     Route: 048
  12. WARFARIN SODIUM [Concomitant]
     Dosage: VARIED DOSE DAILY
     Route: 048
     Dates: start: 20041101
  13. VERSED [Concomitant]
     Dosage: 2 MG, UNK
     Route: 042
     Dates: start: 20050613, end: 20050613
  14. LIPITOR [Concomitant]
     Dosage: 20 MG, QD
     Route: 048
  15. ACETYLSALICYLIC ACID SRT [Concomitant]
     Dosage: 325 MG, QD
     Route: 048
  16. SUCCINYLCHOLINE CHLORIDE [Concomitant]
     Dosage: 100 MG, UNK
     Route: 042
     Dates: start: 20050613, end: 20050613
  17. ATENOLOL [Concomitant]
     Dosage: 100 MG, QD
     Route: 048
  18. DOXYCYCLINE [Concomitant]
     Dosage: 100 MG, BID
     Route: 048
     Dates: start: 20040101
  19. FENTANYL [Concomitant]
     Dosage: 400 MCG
     Route: 042
     Dates: start: 20050613, end: 20050613
  20. NORVASC [Concomitant]
     Dosage: 10 MG, QD
     Route: 048
     Dates: start: 20040101
  21. LISINOPRIL [Concomitant]
     Dosage: 40 MG, QD
     Route: 048
  22. SEVOFLURANE [Concomitant]
     Dosage: INHALED
     Dates: start: 20050613, end: 20050613
  23. TRASYLOL [Suspect]
     Indication: MITRAL VALVE REPAIR
     Dosage: 50 ML / HOUR INFUSION GIVE
     Route: 042
     Dates: start: 20050613, end: 20050613
  24. TRICOR [Concomitant]
     Dosage: 145 MG, QD
     Route: 048
  25. LEVAQUIN [Concomitant]
     Dosage: 500 MG, QD
     Route: 048
     Dates: start: 20050101

REACTIONS (8)
  - INJURY [None]
  - UNEVALUABLE EVENT [None]
  - RENAL FAILURE [None]
  - RENAL FAILURE ACUTE [None]
  - EMOTIONAL DISTRESS [None]
  - PAIN [None]
  - ANAEMIA [None]
  - CARDIAC FAILURE CONGESTIVE [None]
